FAERS Safety Report 9849082 (Version 1)
Quarter: 2013Q4

REPORT INFORMATION
  Report Type: Spontaneous
  Country: US (occurrence: None)
  Receive Date: 20131224
  Receipt Date: 20131224
  Transmission Date: 20140711
  Serious: Yes (Other)
  Sender: FDA-Public Use
  Company Number: PHEH2013US011664

PATIENT
  Age: 51 Year
  Sex: Male

DRUGS (13)
  1. MYFORTIC (MYCOPHENOLIC ACID) UNKNOWN [Suspect]
     Indication: RENAL TRANSPLANT
  2. PROGRAF (TACROLIMUS) [Suspect]
  3. PREDNISONE (PREDNISONE) [Concomitant]
  4. INSULIN (INSULIN) [Concomitant]
  5. PROTONIX (PANTOPRAZOLE SODIUM SESQUIHYDRATE) [Concomitant]
  6. COREG (CARVEDILOL) [Suspect]
  7. LORAZEPAM (LORAZEPAM) [Concomitant]
  8. FLORINEF (FLUDROCORTISONE ACETATE) [Concomitant]
  9. OXYCODONE (OXYCODONE) [Concomitant]
  10. SYNTHROID (LEVOTHYROXINE SODIUM) [Concomitant]
  11. SODIUM BICARBONATE (SODIUM BICARBONATE) [Concomitant]
  12. VITAMIN D (ERGOCALCIFEROL) [Concomitant]
  13. ASPIRIN (ACETYLSALICYLIC ACID) [Concomitant]

REACTIONS (1)
  - Renal impairment [None]
